FAERS Safety Report 6379616-1 (Version None)
Quarter: 2009Q3

REPORT INFORMATION
  Report Type: 
  Country: None (occurrence: None)
  Receive Date: 20090924
  Receipt Date: 20090924
  Transmission Date: 20100115
  Serious: Yes (Disabling, Other)
  Sender: FDA-Public Use
  Company Number: None

PATIENT
  Age: 65 Year
  Sex: Female
  Weight: 63.5036 kg

DRUGS (2)
  1. LEVAQUIN [Suspect]
     Indication: DIVERTICULITIS
     Dates: start: 20090706
  2. LEVAQUIN [Suspect]
     Indication: DIVERTICULITIS
     Dates: start: 20090718

REACTIONS (2)
  - ABASIA [None]
  - MENISCUS LESION [None]
